FAERS Safety Report 8817025 (Version 2)
Quarter: 2012Q4

REPORT INFORMATION
  Report Type: Spontaneous
  Country: FR (occurrence: None)
  Receive Date: 20121002
  Receipt Date: 20121005
  Transmission Date: 20130627
  Serious: Yes (Hospitalization)
  Sender: FDA-Public Use
  Company Number: DSA_59878_2012

PATIENT
  Sex: Male

DRUGS (5)
  1. FLAGYL [Suspect]
     Indication: PRODUCT USED FOR UNKNOWN INDICATION
     Dosage: 350 mg TID Intravenous (not otherwise specified)
     Route: 042
     Dates: start: 20120817, end: 20120908
  2. KEPPRA [Suspect]
     Indication: CONVULSION
     Route: 048
     Dates: start: 20120821, end: 20120907
  3. CLAFORAN /00497602/ [Concomitant]
  4. DUPHALAC/NET (UNKNOWN) [Concomitant]
  5. PERFALGAN (UNKNOWN) [Concomitant]

REACTIONS (10)
  - Drug reaction with eosinophilia and systemic symptoms [None]
  - Neutropenia [None]
  - Pyrexia [None]
  - General physical health deterioration [None]
  - Vomiting [None]
  - Inflammation [None]
  - Hepatitis [None]
  - Epstein-Barr virus test [None]
  - Cytomegalovirus test [None]
  - Anaemia [None]
